FAERS Safety Report 4918475-8 (Version None)
Quarter: 2006Q1

REPORT INFORMATION
  Report Type: 
  Country: None (occurrence: None)
  Receive Date: 20060217
  Receipt Date: 20060217
  Transmission Date: 20060701
  Serious: Yes (Hospitalization)
  Sender: FDA-Public Use
  Company Number: None

PATIENT
  Sex: Female
  Weight: 73 kg

DRUGS (3)
  1. CYCLOPHOSPHAMIDE [Suspect]
     Indication: MANTLE CELL LYMPHOMA
     Dosage: 3210 MG
     Dates: start: 20060120, end: 20060123
  2. DEXAMETHASONE SODIUM PHOSPHATE [Suspect]
     Dosage: 160 MG
     Dates: start: 20060120, end: 20060123
  3. DOXORUBICIN HCL [Suspect]
     Dosage: 270 MG
     Dates: start: 20060123, end: 20060126

REACTIONS (3)
  - DEEP VEIN THROMBOSIS [None]
  - DIZZINESS [None]
  - PULMONARY EMBOLISM [None]
